FAERS Safety Report 21991590 (Version 1)
Quarter: 2023Q1

REPORT INFORMATION
  Report Type: Spontaneous
  Country: US (occurrence: US)
  Receive Date: 20230214
  Receipt Date: 20230214
  Transmission Date: 20230418
  Serious: Yes (Hospitalization)
  Sender: FDA-Public Use
  Company Number: US-TAKEDA-2023TUS013735

PATIENT
  Age: 71 Year
  Sex: Female

DRUGS (4)
  1. GATTEX [Suspect]
     Active Substance: TEDUGLUTIDE\WATER
     Indication: Small intestinal obstruction
     Dosage: 5 MILLIGRAM, QD
     Route: 065
     Dates: start: 20230127
  2. GATTEX [Suspect]
     Active Substance: TEDUGLUTIDE\WATER
     Indication: Small intestinal obstruction
     Dosage: 5 MILLIGRAM, QD
     Route: 065
     Dates: start: 20230127
  3. GATTEX [Suspect]
     Active Substance: TEDUGLUTIDE\WATER
     Indication: Small intestinal obstruction
     Dosage: 5 MILLIGRAM, QD
     Route: 065
     Dates: start: 20230127
  4. GATTEX [Suspect]
     Active Substance: TEDUGLUTIDE\WATER
     Indication: Small intestinal obstruction
     Dosage: 5 MILLIGRAM, QD
     Route: 065
     Dates: start: 20230127

REACTIONS (2)
  - Hospitalisation [Unknown]
  - Underdose [Not Recovered/Not Resolved]

NARRATIVE: CASE EVENT DATE: 20230127
